FAERS Safety Report 16688684 (Version 2)
Quarter: 2020Q1

REPORT INFORMATION
  Report Type: Spontaneous
  Country: US (occurrence: US)
  Receive Date: 20190809
  Receipt Date: 20200211
  Transmission Date: 20200409
  Serious: No
  Sender: FDA-Public Use
  Company Number: US-PURDUE-USA-2019-0147487

PATIENT
  Sex: Female
  Weight: 73.47 kg

DRUGS (7)
  1. AMITRIPTYLINE [Concomitant]
     Active Substance: AMITRIPTYLINE
     Indication: RESTLESS LEGS SYNDROME
     Dosage: 50 UNK, HS
     Route: 065
  2. METFORMIN [Concomitant]
     Active Substance: METFORMIN HYDROCHLORIDE
     Indication: PRODUCT USED FOR UNKNOWN INDICATION
     Dosage: 1000 UNK, BID
     Route: 065
  3. BUTRANS [Suspect]
     Active Substance: BUPRENORPHINE
     Dosage: 10 MCG/HR, WEEKLY
     Route: 062
  4. BUTRANS [Suspect]
     Active Substance: BUPRENORPHINE
     Indication: NEURALGIA
     Dosage: 5 MCG/HR, WEEKLY
     Route: 062
     Dates: start: 201812
  5. LYRICA [Concomitant]
     Active Substance: PREGABALIN
     Indication: NEUROPATHY PERIPHERAL
     Dosage: 75 UNK, BID
     Route: 065
  6. BUPRENORPHINE TRANSDERMAL PATCH (SIMILAR TO NDA 21-306) [Suspect]
     Active Substance: BUPRENORPHINE
     Indication: NEURALGIA
     Dosage: UNK MCG/HR, WEEKLY
     Route: 062
  7. CYMBALTA [Concomitant]
     Active Substance: DULOXETINE HYDROCHLORIDE
     Indication: FIBROMYALGIA
     Dosage: 60 MG, BID
     Route: 065

REACTIONS (11)
  - Application site pruritus [Recovered/Resolved]
  - Application site pain [Recovered/Resolved]
  - Wrong technique in product usage process [Unknown]
  - Neuropathy peripheral [Not Recovered/Not Resolved]
  - Application site rash [Unknown]
  - Application site burn [Unknown]
  - Application site scar [Recovering/Resolving]
  - Application site erythema [Recovered/Resolved]
  - Skin texture abnormal [Not Recovered/Not Resolved]
  - Application site irritation [Recovering/Resolving]
  - Product shape issue [Unknown]
